FAERS Safety Report 6096247-1 (Version None)
Quarter: 2009Q1

REPORT INFORMATION
  Report Type: 
  Country: None (occurrence: None)
  Receive Date: 20090227
  Receipt Date: 20081105
  Transmission Date: 20090719
  Serious: No
  Sender: FDA-Public Use
  Company Number: A0752404A

PATIENT
  Age: 53 Year
  Sex: Male

DRUGS (3)
  1. LAMICTAL [Suspect]
     Indication: BIPOLAR DISORDER
     Dosage: 100MG PER DAY
     Route: 048
     Dates: start: 20080717, end: 20081001
  2. CYMBALTA [Suspect]
     Dosage: 90MG PER DAY
     Route: 048
     Dates: start: 20080301, end: 20081001
  3. VYTORIN [Concomitant]

REACTIONS (4)
  - INFLUENZA LIKE ILLNESS [None]
  - NAUSEA [None]
  - TINNITUS [None]
  - VERTIGO [None]
